FAERS Safety Report 5294460-4 (Version None)
Quarter: 2007Q2

REPORT INFORMATION
  Report Type: 
  Country: None (occurrence: None)
  Receive Date: 20070412
  Receipt Date: 20070402
  Transmission Date: 20071010
  Serious: Yes (Hospitalization)
  Sender: FDA-Public Use
  Company Number: FR-AMGEN-UK210468

PATIENT
  Sex: Female

DRUGS (10)
  1. MIMPARA [Suspect]
     Indication: DRUG USE FOR UNKNOWN INDICATION
     Route: 048
  2. ATACAND [Suspect]
     Route: 048
  3. KAYEXALATE [Suspect]
     Route: 048
  4. ZOLPIDEM [Suspect]
     Route: 048
  5. COUMADIN [Suspect]
  6. OROCAL [Suspect]
     Route: 048
  7. LEXOMIL [Concomitant]
  8. ORACILLINE [Concomitant]
  9. OMEPRAZOLE [Concomitant]
  10. VENOFER [Concomitant]

REACTIONS (2)
  - HYPERTENSION [None]
  - INTRAVASCULAR HAEMOLYSIS [None]
